FAERS Safety Report 10242812 (Version 2)
Quarter: 2015Q2

REPORT INFORMATION
  Report Type: Spontaneous
  Country: MX (occurrence: MX)
  Receive Date: 20140618
  Receipt Date: 20150626
  Transmission Date: 20150821
  Serious: Yes (Death, Other)
  Sender: FDA-Public Use
  Company Number: MX-UCBSA-2014001735

PATIENT
  Age: 51 Year
  Sex: Female

DRUGS (1)
  1. VIMPAT [Suspect]
     Active Substance: LACOSAMIDE
     Indication: EPILEPSY
     Dosage: 200 MG, 2X/12 HOURS
     Route: 048
     Dates: start: 20120515

REACTIONS (2)
  - Malaise [Unknown]
  - Myocardial infarction [Fatal]

NARRATIVE: CASE EVENT DATE: 201404
